FAERS Safety Report 25307963 (Version 1)
Quarter: 2025Q2

REPORT INFORMATION
  Report Type: Spontaneous
  Country: FR (occurrence: FR)
  Receive Date: 20250513
  Receipt Date: 20250513
  Transmission Date: 20250716
  Serious: Yes (Hospitalization)
  Sender: MYLAN
  Company Number: None

PATIENT
  Age: 87 Year
  Sex: Female
  Weight: 61 kg

DRUGS (28)
  1. TELMISARTAN [Suspect]
     Active Substance: TELMISARTAN
     Indication: Hypertension
     Dosage: 80 MILLIGRAM, QD
     Dates: end: 20250407
  2. TELMISARTAN [Suspect]
     Active Substance: TELMISARTAN
     Dosage: 80 MILLIGRAM, QD
     Route: 048
     Dates: end: 20250407
  3. TELMISARTAN [Suspect]
     Active Substance: TELMISARTAN
     Dosage: 80 MILLIGRAM, QD
     Route: 048
     Dates: end: 20250407
  4. TELMISARTAN [Suspect]
     Active Substance: TELMISARTAN
     Dosage: 80 MILLIGRAM, QD
     Dates: end: 20250407
  5. ALFACALCIDOL [Suspect]
     Active Substance: ALFACALCIDOL
     Indication: Hypocalcaemia
     Dosage: 2 MICROGRAM, QD
     Dates: end: 20250407
  6. ALFACALCIDOL [Suspect]
     Active Substance: ALFACALCIDOL
     Dosage: 2 MICROGRAM, QD
     Route: 048
     Dates: end: 20250407
  7. ALFACALCIDOL [Suspect]
     Active Substance: ALFACALCIDOL
     Dosage: 2 MICROGRAM, QD
     Route: 048
     Dates: end: 20250407
  8. ALFACALCIDOL [Suspect]
     Active Substance: ALFACALCIDOL
     Dosage: 2 MICROGRAM, QD
     Dates: end: 20250407
  9. HYDROCHLOROTHIAZIDE [Suspect]
     Active Substance: HYDROCHLOROTHIAZIDE
     Indication: Hypertension
     Dosage: 25 MILLIGRAM, QD
     Dates: end: 20250407
  10. HYDROCHLOROTHIAZIDE [Suspect]
     Active Substance: HYDROCHLOROTHIAZIDE
     Dosage: 25 MILLIGRAM, QD
     Route: 048
     Dates: end: 20250407
  11. HYDROCHLOROTHIAZIDE [Suspect]
     Active Substance: HYDROCHLOROTHIAZIDE
     Dosage: 25 MILLIGRAM, QD
     Route: 048
     Dates: end: 20250407
  12. HYDROCHLOROTHIAZIDE [Suspect]
     Active Substance: HYDROCHLOROTHIAZIDE
     Dosage: 25 MILLIGRAM, QD
     Dates: end: 20250407
  13. FENOFIBRATE [Concomitant]
     Active Substance: FENOFIBRATE
  14. FENOFIBRATE [Concomitant]
     Active Substance: FENOFIBRATE
     Route: 065
  15. FENOFIBRATE [Concomitant]
     Active Substance: FENOFIBRATE
     Route: 065
  16. FENOFIBRATE [Concomitant]
     Active Substance: FENOFIBRATE
  17. LEVOTHYROXINE [Concomitant]
     Active Substance: LEVOTHYROXINE
  18. LEVOTHYROXINE [Concomitant]
     Active Substance: LEVOTHYROXINE
     Route: 065
  19. LEVOTHYROXINE [Concomitant]
     Active Substance: LEVOTHYROXINE
     Route: 065
  20. LEVOTHYROXINE [Concomitant]
     Active Substance: LEVOTHYROXINE
  21. ESOMEPRAZOLE [Concomitant]
     Active Substance: ESOMEPRAZOLE
  22. ESOMEPRAZOLE [Concomitant]
     Active Substance: ESOMEPRAZOLE
     Route: 065
  23. ESOMEPRAZOLE [Concomitant]
     Active Substance: ESOMEPRAZOLE
     Route: 065
  24. ESOMEPRAZOLE [Concomitant]
     Active Substance: ESOMEPRAZOLE
  25. FOLIC ACID [Concomitant]
     Active Substance: FOLIC ACID
  26. FOLIC ACID [Concomitant]
     Active Substance: FOLIC ACID
     Route: 065
  27. FOLIC ACID [Concomitant]
     Active Substance: FOLIC ACID
     Route: 065
  28. FOLIC ACID [Concomitant]
     Active Substance: FOLIC ACID

REACTIONS (2)
  - Hypercalcaemia [Recovered/Resolved]
  - Acute kidney injury [Recovering/Resolving]

NARRATIVE: CASE EVENT DATE: 20250407
